FAERS Safety Report 10046361 (Version 1)
Quarter: 2014Q1

REPORT INFORMATION
  Report Type: Spontaneous
  Country: US (occurrence: US)
  Receive Date: 20140331
  Receipt Date: 20140331
  Transmission Date: 20141002
  Serious: No
  Sender: FDA-Public Use
  Company Number: US-BIOGENIDEC-2014BI027399

PATIENT
  Age: 66 Year
  Sex: Female

DRUGS (24)
  1. TECFIDERA [Suspect]
     Indication: MULTIPLE SCLEROSIS
     Route: 048
  2. CREON [Concomitant]
  3. ESTRACE [Concomitant]
  4. LEXAPRO [Concomitant]
  5. SAM-E [Concomitant]
  6. PANCRELIPASE [Concomitant]
  7. CALCIUM [Concomitant]
  8. NAPROSYN [Concomitant]
  9. LORAZEPAM [Concomitant]
  10. NEXIUM [Concomitant]
  11. ESTRADIOL [Concomitant]
  12. OXYBUTININ [Concomitant]
  13. OMEGA 3 [Concomitant]
  14. ASPIRIN [Concomitant]
  15. PREDNISOLONE [Concomitant]
  16. EVENING PRIMROSE [Concomitant]
  17. CHLOECALCIFEROL [Concomitant]
  18. GINKO BILOBA [Concomitant]
  19. B-COMPLEX [Concomitant]
  20. FIBERCON [Concomitant]
  21. CENTRUM [Concomitant]
  22. XANAX [Concomitant]
  23. DETROL LA [Concomitant]
  24. PANCREASE [Concomitant]

REACTIONS (2)
  - Pain in extremity [Unknown]
  - Insomnia [Unknown]
